FAERS Safety Report 8386302-5 (Version None)
Quarter: 2012Q2

REPORT INFORMATION
  Report Type: 
  Country: None (occurrence: None)
  Receive Date: 20120525
  Receipt Date: 20120517
  Transmission Date: 20120825
  Serious: Yes (Other)
  Sender: FDA-Public Use
  Company Number: JP-ABBOTT-12P-087-0905402-00

PATIENT
  Age: 36 Year
  Sex: Female
  Weight: 49 kg

DRUGS (1)
  1. LEUPROLIDE ACETATE [Suspect]
     Indication: UTERINE LEIOMYOMA
     Route: 058
     Dates: start: 20111104, end: 20111227

REACTIONS (1)
  - BLOOD CREATINE PHOSPHOKINASE INCREASED [None]
